FAERS Safety Report 25445190 (Version 1)
Quarter: 2025Q2

REPORT INFORMATION
  Report Type: Report from Study
  Country: US (occurrence: US)
  Receive Date: 20250617
  Receipt Date: 20250617
  Transmission Date: 20250716
  Serious: Yes (Hospitalization, Other)
  Sender: MYLAN
  Company Number: US-MYLANLABS-2025M1049987

PATIENT
  Age: 63 Year
  Sex: Male

DRUGS (4)
  1. MELPHALAN HYDROCHLORIDE [Suspect]
     Active Substance: MELPHALAN HYDROCHLORIDE
     Indication: Product used for unknown indication
  2. MELPHALAN HYDROCHLORIDE [Suspect]
     Active Substance: MELPHALAN HYDROCHLORIDE
     Route: 065
  3. MELPHALAN HYDROCHLORIDE [Suspect]
     Active Substance: MELPHALAN HYDROCHLORIDE
     Route: 065
  4. MELPHALAN HYDROCHLORIDE [Suspect]
     Active Substance: MELPHALAN HYDROCHLORIDE

REACTIONS (3)
  - Hypoxia [Recovered/Resolved]
  - Pneumonitis [Recovered/Resolved]
  - Acute respiratory distress syndrome [Recovered/Resolved]

NARRATIVE: CASE EVENT DATE: 20250303
